FAERS Safety Report 18606091 (Version 1)
Quarter: 2020Q4

REPORT INFORMATION
  Report Type: Spontaneous
  Country: US (occurrence: US)
  Receive Date: 20201211
  Receipt Date: 20201211
  Transmission Date: 20210114
  Serious: No
  Sender: FDA-Public Use
  Company Number: US-FRESENIUS KABI-FK202012981

PATIENT
  Age: 65 Year
  Sex: Female
  Weight: 88.5 kg

DRUGS (4)
  1. CEFTRIAXONE SODIUM. [Suspect]
     Active Substance: CEFTRIAXONE SODIUM
     Indication: LYME DISEASE
     Dosage: 5 DAYS ON, 2 DAYS OFF
     Route: 030
  2. LIDOCAINE HYDROCHLORIDE INJECTION, USP [Suspect]
     Active Substance: LIDOCAINE HYDROCHLORIDE
     Indication: MEDICATION DILUTION
     Dosage: 5 DAYS ON, 2 DAYS OFF
     Route: 030
  3. DILTIAZEM. [Concomitant]
     Active Substance: DILTIAZEM
     Indication: PRODUCT USED FOR UNKNOWN INDICATION
     Route: 048
  4. URSODEOXYCHOLIC ACID [Concomitant]
     Active Substance: URSODIOL
     Indication: PRODUCT USED FOR UNKNOWN INDICATION
     Route: 065

REACTIONS (2)
  - Intentional product use issue [Recovered/Resolved]
  - Injection site pain [Recovered/Resolved]
